FAERS Safety Report 8479718-X (Version None)
Quarter: 2012Q2

REPORT INFORMATION
  Report Type: 
  Country: None (occurrence: None)
  Receive Date: 20120629
  Receipt Date: 20120618
  Transmission Date: 20120825
  Serious: Yes (Hospitalization)
  Sender: FDA-Public Use
  Company Number: JP-VERTEX PHARMACEUTICALS INC.-AE-2012-009284

PATIENT
  Age: 67 Year
  Sex: Female

DRUGS (17)
  1. RIBAVIRIN [Concomitant]
     Indication: HEPATITIS C
     Route: 048
     Dates: start: 20120301, end: 20120314
  2. RIBAVIRIN [Concomitant]
     Route: 048
     Dates: start: 20120315, end: 20120321
  3. NAUZELIN OD [Concomitant]
     Route: 048
     Dates: start: 20120312
  4. ESTAZOLAM [Concomitant]
     Route: 048
  5. EPADEL S [Concomitant]
     Route: 048
     Dates: start: 20120301
  6. TELAVIC (TELAPREVIR) [Suspect]
     Indication: HEPATITIS C
     Route: 048
     Dates: start: 20120301, end: 20120321
  7. TELAVIC (TELAPREVIR) [Suspect]
     Route: 048
     Dates: start: 20120322, end: 20120411
  8. PEGINTERFERON ALFA-2B [Concomitant]
     Indication: HEPATITIS C
     Route: 058
     Dates: start: 20120301
  9. LOXONIN [Concomitant]
     Route: 048
     Dates: start: 20120302
  10. KARY UNI [Concomitant]
     Route: 047
     Dates: start: 20120322, end: 20120322
  11. MUCOSTA [Concomitant]
     Route: 048
     Dates: start: 20120506, end: 20120520
  12. NIZATIDINE [Concomitant]
     Route: 048
     Dates: start: 20120510
  13. RIBAVIRIN [Concomitant]
     Route: 048
     Dates: start: 20120329
  14. FEBURIC [Concomitant]
     Route: 048
     Dates: start: 20120301
  15. TELAVIC (TELAPREVIR) [Suspect]
     Route: 048
     Dates: start: 20120412, end: 20120510
  16. RIBAVIRIN [Concomitant]
     Route: 048
     Dates: start: 20120322, end: 20120328
  17. NAUZELIN OD [Concomitant]
     Route: 048
     Dates: start: 20120306

REACTIONS (1)
  - ERYTHEMA MULTIFORME [None]
